FAERS Safety Report 9642149 (Version 5)
Quarter: 2014Q4

REPORT INFORMATION
  Report Type: Report from Study
  Country: JP (occurrence: JP)
  Receive Date: 20131023
  Receipt Date: 20141006
  Transmission Date: 20150529
  Serious: Yes (Other)
  Sender: FDA-Public Use
  Company Number: PHHY2012JP122818

PATIENT
  Age: 22 Year
  Sex: Male
  Weight: 43.8 kg

DRUGS (6)
  1. ACZ885 [Suspect]
     Active Substance: CANAKINUMAB
     Dosage: 300 MG, UNK
  2. GLAKAY [Concomitant]
  3. ONEALFA [Concomitant]
     Active Substance: ALFACALCIDOL
  4. ACZ885 [Suspect]
     Active Substance: CANAKINUMAB
     Dosage: 150 MG, UNK
     Dates: end: 20140206
  5. ACZ885 [Suspect]
     Active Substance: CANAKINUMAB
     Indication: CHRONIC INFANTILE NEUROLOGICAL CUTANEOUS AND ARTICULAR SYNDROME
     Dosage: 150 MG,
     Dates: start: 20120202, end: 20130110
  6. LOCOID [Concomitant]
     Active Substance: HYDROCORTISONE BUTYRATE
     Dosage: UNK
     Dates: start: 20120206

REACTIONS (18)
  - Impetigo [Recovering/Resolving]
  - White blood cell count increased [Unknown]
  - Neutrophil count decreased [Unknown]
  - Skin induration [Recovered/Resolved]
  - Eosinophil count increased [Unknown]
  - Nasopharyngitis [Unknown]
  - Serum amyloid A protein increased [Unknown]
  - Back pain [Recovered/Resolved]
  - Subcutaneous abscess [Recovered/Resolved]
  - Neutrophil count increased [Unknown]
  - Lymphocyte count increased [Unknown]
  - Skin infection [Recovered/Resolved]
  - Monocyte count increased [Unknown]
  - Upper respiratory tract inflammation [Recovering/Resolving]
  - Lymphocyte count decreased [Unknown]
  - Dyspnoea [Recovered/Resolved]
  - Dyspepsia [Recovered/Resolved]
  - Purulent discharge [Recovered/Resolved]

NARRATIVE: CASE EVENT DATE: 20120209
